FAERS Safety Report 5546232-0 (Version None)
Quarter: 2007Q4

REPORT INFORMATION
  Report Type: 
  Country: None (occurrence: None)
  Receive Date: 20071211
  Receipt Date: 20071207
  Transmission Date: 20080405
  Serious: Yes (Life-Threatening, Hospitalization)
  Sender: FDA-Public Use
  Company Number: DE-AVENTIS-200713061DE

PATIENT
  Sex: Female

DRUGS (1)
  1. LANTUS [Suspect]
     Indication: SUICIDE ATTEMPT
     Dates: start: 20071201, end: 20071201

REACTIONS (3)
  - HYPOGLYCAEMIA [None]
  - INTENTIONAL OVERDOSE [None]
  - SUICIDE ATTEMPT [None]
